FAERS Safety Report 7919404-5 (Version None)
Quarter: 2011Q4

REPORT INFORMATION
  Report Type: 
  Country: None (occurrence: None)
  Receive Date: 20111115
  Receipt Date: 20111115
  Transmission Date: 20120403
  Serious: Yes (Hospitalization)
  Sender: FDA-Public Use
  Company Number: None

PATIENT
  Age: 44 Year
  Sex: Male
  Weight: 78.7 kg

DRUGS (2)
  1. FLUPHENAZINE [Suspect]
     Indication: SCHIZOAFFECTIVE DISORDER
     Dosage: 5 MG PRN IM; 1 MG PRN PO
     Route: 030
     Dates: start: 20111023, end: 20111026
  2. FLUPHENAZINE [Suspect]
     Indication: SCHIZOAFFECTIVE DISORDER
     Dosage: 5 MG PRN IM; 1 MG PRN PO
     Route: 030
     Dates: start: 20111024, end: 20111026

REACTIONS (6)
  - THROAT TIGHTNESS [None]
  - CHOKING SENSATION [None]
  - ANGIOEDEMA [None]
  - SWOLLEN TONGUE [None]
  - SPEECH DISORDER [None]
  - DYSPNOEA [None]
